FAERS Safety Report 15793028 (Version 1)
Quarter: 2019Q1

REPORT INFORMATION
  Report Type: Spontaneous
  Country: BR (occurrence: BR)
  Receive Date: 20190107
  Receipt Date: 20190107
  Transmission Date: 20190417
  Serious: Yes (Other)
  Sender: FDA-Public Use
  Company Number: PHHY2019BR000898

PATIENT
  Age: 63 Year
  Sex: Female

DRUGS (1)
  1. CAPTOPRIL. [Suspect]
     Active Substance: CAPTOPRIL
     Indication: HYPERTENSION
     Dosage: 50 MG, QD
     Route: 065

REACTIONS (5)
  - Somnolence [Unknown]
  - Dizziness [Unknown]
  - Vision blurred [Unknown]
  - Hyperinsulinaemic hypoglycaemia [Recovering/Resolving]
  - Insulin autoimmune syndrome [Recovering/Resolving]
